FAERS Safety Report 23926268 (Version 1)
Quarter: 2024Q2

REPORT INFORMATION
  Report Type: Spontaneous
  Country: US (occurrence: None)
  Receive Date: 20240531
  Receipt Date: 20240531
  Transmission Date: 20240715
  Serious: Yes (Hospitalization)
  Sender: FDA-Public Use
  Company Number: None

PATIENT
  Age: 73 Year
  Sex: Male

DRUGS (20)
  1. TACROLIMUS [Suspect]
     Active Substance: TACROLIMUS
     Indication: Renal transplant
     Dosage: FREQUENCY : TWICE A DAY;?
     Route: 048
  2. medaspirin [Concomitant]
  3. AZATHIOPRINE [Concomitant]
  4. CARBIDOPA\LEVODOPA [Concomitant]
     Active Substance: CARBIDOPA\LEVODOPA
  5. CARVEDILOL [Concomitant]
  6. clonldine [Concomitant]
  7. DEVICE [Concomitant]
     Active Substance: DEVICE
  8. ELIQUIS [Concomitant]
     Active Substance: APIXABAN
  9. FERROUS SULFATE [Concomitant]
  10. FUROSEMIDE [Concomitant]
  11. LISINOPRIL [Concomitant]
  12. NIFEDIPINE [Concomitant]
  13. NOVOLOG [Concomitant]
     Active Substance: INSULIN ASPART
  14. pravavastatin [Concomitant]
  15. PREDNISONE [Concomitant]
  16. SODIUM BICARBONATE [Concomitant]
  17. vitamin d [Concomitant]
  18. tamaulsin [Concomitant]
  19. VITAMIN B12 [Concomitant]
     Active Substance: CYANOCOBALAMIN
  20. VELTASSA [Concomitant]
     Active Substance: PATIROMER

REACTIONS (1)
  - Kidney transplant rejection [None]

NARRATIVE: CASE EVENT DATE: 20240501
